FAERS Safety Report 9288006 (Version 1)
Quarter: 2013Q2

REPORT INFORMATION
  Report Type: Spontaneous
  Country: CA (occurrence: CA)
  Receive Date: 20130514
  Receipt Date: 20130514
  Transmission Date: 20140414
  Serious: Yes (Hospitalization, Other)
  Sender: FDA-Public Use
  Company Number: CA-ROCHE-1164150

PATIENT
  Age: 45 Year
  Sex: Female
  Weight: 80.09 kg

DRUGS (1)
  1. XOLAIR [Suspect]
     Indication: ASTHMA
     Dosage: 375 MG
     Route: 058
     Dates: start: 20081105

REACTIONS (4)
  - Condition aggravated [Unknown]
  - Asthma [Unknown]
  - Headache [Unknown]
  - Pain in extremity [Recovered/Resolved]
